FAERS Safety Report 8068736-1 (Version None)
Quarter: 2012Q1

REPORT INFORMATION
  Report Type: 
  Country: None (occurrence: None)
  Receive Date: 20120124
  Receipt Date: 20111121
  Transmission Date: 20120608
  Serious: No
  Sender: FDA-Public Use
  Company Number: US-AMGEN-USASP2011061322

PATIENT
  Sex: Female

DRUGS (2)
  1. SYNTHROID [Concomitant]
     Dosage: UNK
  2. PROLIA [Suspect]
     Indication: OSTEOPOROSIS POSTMENOPAUSAL
     Dosage: UNK
     Dates: start: 20110101

REACTIONS (3)
  - HYPOAESTHESIA [None]
  - POLLAKIURIA [None]
  - CYSTITIS [None]
